FAERS Safety Report 16280630 (Version 4)
Quarter: 2025Q3

REPORT INFORMATION
  Report Type: Report from Study
  Country: EU (occurrence: EU)
  Receive Date: 20190507
  Receipt Date: 20250814
  Transmission Date: 20251020
  Serious: Yes (Hospitalization, Other)
  Sender: AUROBINDO
  Company Number: EU-AUROBINDO-AUR-APL-2019-025260

PATIENT
  Age: 64 Year
  Sex: Male

DRUGS (6)
  1. PREDNISOLONE [Suspect]
     Active Substance: PREDNISOLONE
     Indication: Immunosuppressant drug therapy
     Route: 065
     Dates: start: 2013
  2. PREDNISONE [Suspect]
     Active Substance: PREDNISONE
     Indication: Immunosuppressant drug therapy
     Route: 065
  3. PREDNISONE [Suspect]
     Active Substance: PREDNISONE
     Dosage: 1 MILLIGRAM, ONCE A DAY
     Route: 065
     Dates: start: 2013
  4. MYCOPHENOLATE MOFETIL [Suspect]
     Active Substance: MYCOPHENOLATE MOFETIL
     Indication: Immunosuppressant drug therapy
     Dosage: 1500 MILLIGRAM, TWO TIMES A DAY
     Route: 065
  5. MYCOPHENOLATE MOFETIL [Suspect]
     Active Substance: MYCOPHENOLATE MOFETIL
     Route: 065
     Dates: start: 2013
  6. CYCLOSPORINE [Suspect]
     Active Substance: CYCLOSPORINE
     Indication: Immunosuppressant drug therapy
     Dosage: 80 MILLIGRAM, TWO TIMES A DAY
     Route: 065

REACTIONS (16)
  - Respiratory distress [Recovered/Resolved]
  - Tularaemia [Recovered/Resolved]
  - Pyrexia [Recovered/Resolved]
  - Chills [Recovered/Resolved]
  - Cough [Recovered/Resolved]
  - Night sweats [Recovered/Resolved]
  - Abdominal lymphadenopathy [Unknown]
  - Neutrophilia [Recovered/Resolved]
  - Pleural effusion [Recovered/Resolved]
  - Leukocytosis [Recovered/Resolved]
  - Bacterial infection [Recovered/Resolved]
  - Condition aggravated [Recovered/Resolved]
  - Hepatic mass [Unknown]
  - Weight decreased [Recovered/Resolved]
  - C-reactive protein increased [Unknown]
  - Lymphadenopathy mediastinal [Recovered/Resolved]

NARRATIVE: CASE EVENT DATE: 20160101
